FAERS Safety Report 5200108-7 (Version None)
Quarter: 2007Q1

REPORT INFORMATION
  Report Type: 
  Country: None (occurrence: None)
  Receive Date: 20070105
  Receipt Date: 20061229
  Transmission Date: 20070707
  Serious: Yes (Life-Threatening)
  Sender: FDA-Public Use
  Company Number: JP-GLAXOSMITHKLINE-B0451905A

PATIENT
  Age: 59 Year
  Sex: Female

DRUGS (5)
  1. PAXIL [Suspect]
     Indication: DEPRESSION
     Dosage: 20MG PER DAY
     Route: 048
     Dates: start: 20061201, end: 20061223
  2. RISPERDAL [Concomitant]
     Route: 048
  3. LORAZEPAM [Concomitant]
     Route: 048
  4. TOLEDOMIN [Concomitant]
     Route: 048
  5. SILECE [Concomitant]
     Route: 048

REACTIONS (1)
  - NEUROLEPTIC MALIGNANT SYNDROME [None]
